FAERS Safety Report 6362928-5 (Version None)
Quarter: 2009Q3

REPORT INFORMATION
  Report Type: 
  Country: None (occurrence: None)
  Receive Date: 20090919
  Receipt Date: 20090611
  Transmission Date: 20100115
  Serious: No
  Sender: FDA-Public Use
  Company Number: US-ABBOTT-09P-163-0579670-00

PATIENT
  Sex: Female

DRUGS (8)
  1. HUMIRA [Suspect]
     Indication: RHEUMATOID ARTHRITIS
     Route: 058
     Dates: start: 20080701, end: 20081001
  2. HUMIRA [Suspect]
     Dates: start: 20081217, end: 20090219
  3. HUMIRA [Suspect]
     Dates: start: 20090430
  4. SYNTHROID [Concomitant]
     Indication: HYPOTHYROIDISM
     Route: 048
  5. NEXIUM [Concomitant]
     Indication: GASTROOESOPHAGEAL REFLUX DISEASE
     Route: 048
  6. PLAQUENIL [Concomitant]
     Indication: RHEUMATOID ARTHRITIS
     Route: 048
  7. AMOXICILLIN [Concomitant]
     Indication: ACNE CYSTIC
     Route: 048
  8. LITHIUM CARBONATE [Concomitant]
     Indication: DEPRESSION
     Route: 048

REACTIONS (4)
  - CANDIDIASIS [None]
  - CONJUNCTIVITIS INFECTIVE [None]
  - FUNGAL INFECTION [None]
  - SINUSITIS [None]
